FAERS Safety Report 5047207-0 (Version None)
Quarter: 2006Q3

REPORT INFORMATION
  Report Type: 
  Country: None (occurrence: None)
  Receive Date: 20060705
  Receipt Date: 20060622
  Transmission Date: 20061208
  Serious: Yes (Other)
  Sender: FDA-Public Use
  Company Number: FRP06000172

PATIENT
  Age: 94 Year
  Sex: Female
  Weight: 33 kg

DRUGS (6)
  1. ACTONEL [Suspect]
     Indication: OSTEOPOROSIS
     Dosage: 35, 1/WEEK, ORAL
     Route: 048
     Dates: start: 20040601
  2. CACIT D3(CALCIUM CARBONATE, COLECALCIFEROL) [Suspect]
     Indication: OSTEOPOROSIS
     Dosage: ORAL
     Route: 048
     Dates: start: 20050101
  3. MOTILIUM [Concomitant]
  4. OMEPRAZOLE [Concomitant]
  5. SEERECOR (HYDROQUINIDINE HYDROCHLORIDE) [Concomitant]
  6. CORVASAL (MOLSIDOMINE) [Concomitant]

REACTIONS (2)
  - BREAST CANCER FEMALE [None]
  - BREAST MASS [None]
